FAERS Safety Report 14054513 (Version 1)
Quarter: 2017Q4

REPORT INFORMATION
  Report Type: Spontaneous
  Country: US (occurrence: None)
  Receive Date: 20171005
  Receipt Date: 20171005
  Transmission Date: 20180321
  Serious: Yes (Hospitalization)
  Sender: FDA-Public Use
  Company Number: None

PATIENT
  Age: 51 Year
  Sex: Female

DRUGS (2)
  1. PIPERACILLIN/TAZOBACTAM [Suspect]
     Active Substance: PIPERACILLIN SODIUM\TAZOBACTAM SODIUM
     Indication: UPPER RESPIRATORY TRACT INFECTION
     Route: 042
     Dates: start: 20161208, end: 20161213
  2. VANCOMYCIN [Suspect]
     Active Substance: VANCOMYCIN
     Indication: UPPER RESPIRATORY TRACT INFECTION
     Route: 042
     Dates: start: 20161208, end: 20161213

REACTIONS (7)
  - Urinary tract infection [None]
  - Nephropathy [None]
  - Pyrexia [None]
  - Pneumonia [None]
  - Large intestinal obstruction [None]
  - Confusional state [None]
  - Acute kidney injury [None]

NARRATIVE: CASE EVENT DATE: 20161213
